FAERS Safety Report 18737214 (Version 1)
Quarter: 2021Q1

REPORT INFORMATION
  Report Type: Spontaneous
  Country: US (occurrence: US)
  Receive Date: 20210113
  Receipt Date: 20210113
  Transmission Date: 20210419
  Serious: Yes (Other)
  Sender: FDA-Public Use
  Company Number: US-SA-2021SA005649

PATIENT
  Sex: Male

DRUGS (4)
  1. MULTAQ [Suspect]
     Active Substance: DRONEDARONE
     Dosage: 400 MG, TID
  2. MULTAQ [Suspect]
     Active Substance: DRONEDARONE
     Indication: ATRIAL FIBRILLATION
     Dosage: 400 MG, BID
  3. MULTAQ [Suspect]
     Active Substance: DRONEDARONE
     Dosage: 400 MG, BID
  4. MULTAQ [Suspect]
     Active Substance: DRONEDARONE
     Dosage: 400 MG, TID

REACTIONS (2)
  - Atrial fibrillation [Not Recovered/Not Resolved]
  - Off label use [Unknown]
